FAERS Safety Report 8159207-2 (Version None)
Quarter: 2012Q1

REPORT INFORMATION
  Report Type: 
  Country: None (occurrence: None)
  Receive Date: 20120217
  Receipt Date: 20120203
  Transmission Date: 20120608
  Serious: Yes (Life-Threatening, Hospitalization, Other)
  Sender: FDA-Public Use
  Company Number: 2011MA018038

PATIENT
  Age: 54 Year
  Sex: Male

DRUGS (10)
  1. METFORMIN HCL [Suspect]
     Indication: DIABETES MELLITUS MANAGEMENT
     Dosage: PO
     Route: 048
     Dates: end: 20111209
  2. ASPIRIN [Concomitant]
  3. FUROSEMIDE [Concomitant]
  4. RAMIPRIL [Suspect]
     Indication: HYPERTENSION
     Dosage: PO
     Route: 048
  5. BISOPROLOL FUMARATE [Concomitant]
  6. UNSPECIFIED THERAPEUTIC PRODUCTS [Concomitant]
  7. ATORVASTATIN [Concomitant]
  8. GLUCERYL TRINITRETE [Concomitant]
  9. HEPARIN [Concomitant]
  10. CLOPIDOGREL [Concomitant]

REACTIONS (7)
  - FALL [None]
  - VOMITING [None]
  - HYPOTHERMIA [None]
  - HYPOGLYCAEMIA [None]
  - RENAL FAILURE ACUTE [None]
  - MALAISE [None]
  - SEPSIS [None]
